FAERS Safety Report 6040331-5 (Version None)
Quarter: 2009Q1

REPORT INFORMATION
  Report Type: 
  Country: None (occurrence: None)
  Receive Date: 20090116
  Receipt Date: 20080215
  Transmission Date: 20090719
  Serious: No
  Sender: FDA-Public Use
  Company Number: US-BRISTOL-MYERS SQUIBB COMPANY-14078158

PATIENT
  Age: 41 Year
  Sex: Female
  Weight: 78 kg

DRUGS (5)
  1. ABILIFY [Suspect]
     Indication: BIPOLAR DISORDER
  2. RISPERDAL [Concomitant]
  3. EFFEXOR [Concomitant]
  4. CLONAZEPAM [Concomitant]
  5. SYNTHROID [Concomitant]

REACTIONS (1)
  - WEIGHT INCREASED [None]
